FAERS Safety Report 17478570 (Version 1)
Quarter: 2020Q1

REPORT INFORMATION
  Report Type: Spontaneous
  Country: FR (occurrence: FR)
  Receive Date: 20200228
  Receipt Date: 20200228
  Transmission Date: 20200409
  Serious: Yes (Death)
  Sender: FDA-Public Use
  Company Number: FR-ALLERGAN-2009039US

PATIENT
  Sex: Female
  Weight: 46.5 kg

DRUGS (14)
  1. POLYIONIQUE G PHARMACIE CENTRALE DES ARMEES [Concomitant]
     Route: 065
  2. VALIUM [Suspect]
     Active Substance: DIAZEPAM
     Indication: CATATONIA
     Dosage: 5 MG, QD
     Route: 042
     Dates: start: 20191129, end: 20191203
  3. MIRTAZAPINE. [Concomitant]
     Active Substance: MIRTAZAPINE
     Route: 065
  4. ZOLPIDEM [Concomitant]
     Active Substance: ZOLPIDEM TARTRATE
     Route: 065
  5. NOVORAPID [Concomitant]
     Active Substance: INSULIN ASPART
     Route: 065
  6. AMOXICILLINE                       /00249602/ [Concomitant]
     Active Substance: AMOXICILLIN
     Route: 065
  7. LORAZEPAM. [Concomitant]
     Active Substance: LORAZEPAM
     Route: 065
  8. LOVENOX [Concomitant]
     Active Substance: ENOXAPARIN SODIUM
     Route: 065
  9. OGASTORO [Concomitant]
     Active Substance: LANSOPRAZOLE
     Route: 065
  10. DIFFU K, G?LULE [Concomitant]
     Active Substance: POTASSIUM CHLORIDE
     Route: 065
  11. ALPRAZOLAM. [Concomitant]
     Active Substance: ALPRAZOLAM
     Route: 065
  12. CITALOPRAM HYDROBROMIDE - BP [Suspect]
     Active Substance: CITALOPRAM HYDROBROMIDE
     Indication: CATATONIA
     Dosage: 10 MG, QD
     Route: 042
     Dates: start: 20191129, end: 20191203
  13. VALIUM [Suspect]
     Active Substance: DIAZEPAM
     Dosage: 15 MOL, QD
     Route: 042
     Dates: start: 20191127, end: 20191129
  14. VITAMINE B12 [Concomitant]
     Active Substance: CYANOCOBALAMIN
     Route: 065

REACTIONS (5)
  - Oxygen saturation decreased [Fatal]
  - Product use in unapproved indication [Unknown]
  - Hypoventilation [Fatal]
  - Hypothermia [Fatal]
  - Hyponatraemia [Fatal]

NARRATIVE: CASE EVENT DATE: 20191127
